FAERS Safety Report 5948582-2 (Version None)
Quarter: 2008Q4

REPORT INFORMATION
  Report Type: 
  Country: None (occurrence: None)
  Receive Date: 20081107
  Receipt Date: 20081024
  Transmission Date: 20090506
  Serious: Yes (Other)
  Sender: FDA-Public Use
  Company Number: 2007US002714

PATIENT
  Age: 47 Year
  Sex: Female

DRUGS (4)
  1. PROTOPIC [Suspect]
     Indication: DERMATITIS ATOPIC
     Dosage: 0.1%, TOPICAL
     Route: 061
     Dates: start: 20060201
  2. ALBUTEROL (SALBUTAMOL SULFATE) [Concomitant]
  3. SINGULAIR [Concomitant]
  4. CLOBETASOL PROPIONATE [Concomitant]

REACTIONS (5)
  - ALANINE AMINOTRANSFERASE INCREASED [None]
  - ANTINUCLEAR ANTIBODY POSITIVE [None]
  - ASPARTATE AMINOTRANSFERASE INCREASED [None]
  - FLUSHING [None]
  - HEPATIC ENZYME INCREASED [None]
